FAERS Safety Report 6188794-9 (Version None)
Quarter: 2009Q2

REPORT INFORMATION
  Report Type: 
  Country: None (occurrence: None)
  Receive Date: 20090511
  Receipt Date: 20090511
  Transmission Date: 20091009
  Serious: Yes (Other)
  Sender: FDA-Public Use
  Company Number: None

PATIENT
  Age: 65 Year
  Sex: Female
  Weight: 79.3795 kg

DRUGS (1)
  1. ZYCAM OTC [Suspect]
     Indication: NASOPHARYNGITIS
     Dosage: ONE DOSE TAKEN 3 TIMES EVERY 10 HOURS
     Dates: start: 20090428, end: 20090429

REACTIONS (2)
  - AGEUSIA [None]
  - ANOSMIA [None]
